FAERS Safety Report 14639026 (Version 2)
Quarter: 2018Q4

REPORT INFORMATION
  Report Type: Spontaneous
  Country: FR (occurrence: FR)
  Receive Date: 20180315
  Receipt Date: 20181026
  Transmission Date: 20190204
  Serious: Yes (Other)
  Sender: FDA-Public Use
  Company Number: FR-MERCK KGAA-2043760

PATIENT
  Age: 68 Year
  Sex: Male

DRUGS (1)
  1. EUTHYROX [Suspect]
     Active Substance: LEVOTHYROXINE SODIUM
     Indication: PRODUCT USED FOR UNKNOWN INDICATION

REACTIONS (13)
  - Fatigue [None]
  - Fear [None]
  - Dizziness [None]
  - Social avoidant behaviour [None]
  - Poor quality sleep [None]
  - Arthropathy [None]
  - Muscle disorder [None]
  - Insomnia [None]
  - Headache [None]
  - Asthenia [None]
  - Loss of personal independence in daily activities [None]
  - Somnolence [None]
  - Tachycardia [None]

NARRATIVE: CASE EVENT DATE: 201706
